FAERS Safety Report 7467955-2 (Version None)
Quarter: 2011Q2

REPORT INFORMATION
  Report Type: 
  Country: None (occurrence: None)
  Receive Date: 20110509
  Receipt Date: 20110502
  Transmission Date: 20111010
  Serious: Yes (Other)
  Sender: FDA-Public Use
  Company Number: US-AMGEN-USASP2011022669

PATIENT
  Age: 25 Year
  Sex: Female

DRUGS (1)
  1. NPLATE [Suspect]
     Indication: IDIOPATHIC THROMBOCYTOPENIC PURPURA
     Dosage: 1 A?G/KG, UNK
     Route: 058

REACTIONS (4)
  - THROMBOCYTOSIS [None]
  - NAUSEA [None]
  - THERAPEUTIC RESPONSE DECREASED [None]
  - HEADACHE [None]
